FAERS Safety Report 15997016 (Version 2)
Quarter: 2019Q1

REPORT INFORMATION
  Report Type: Spontaneous
  Country: US (occurrence: US)
  Receive Date: 20190222
  Receipt Date: 20190305
  Transmission Date: 20190418
  Serious: Yes (Other)
  Sender: FDA-Public Use
  Company Number: US-GLAXOSMITHKLINE-US2019028213

PATIENT
  Sex: Female

DRUGS (1)
  1. BENLYSTA [Suspect]
     Active Substance: BELIMUMAB
     Indication: SYSTEMIC LUPUS ERYTHEMATOSUS RASH
     Dosage: UNK
     Route: 042

REACTIONS (13)
  - Bedridden [Unknown]
  - Blood potassium decreased [Unknown]
  - Swelling [Unknown]
  - Dermatitis [Not Recovered/Not Resolved]
  - Asthenia [Unknown]
  - Feeding disorder [Unknown]
  - Systemic lupus erythematosus [Unknown]
  - Renal impairment [Unknown]
  - Vitamin D decreased [Unknown]
  - Pain [Unknown]
  - Impaired gastric emptying [Unknown]
  - Rash [Unknown]
  - Fluid retention [Unknown]
